FAERS Safety Report 8213410-1 (Version None)
Quarter: 2012Q1

REPORT INFORMATION
  Report Type: 
  Country: None (occurrence: None)
  Receive Date: 20120315
  Receipt Date: 20120306
  Transmission Date: 20120608
  Serious: Yes (Death)
  Sender: FDA-Public Use
  Company Number: JP-ROCHE-1048286

PATIENT
  Age: 68 Year
  Sex: Male

DRUGS (5)
  1. VINCRISTINE SULFATE [Concomitant]
  2. CYCLOPHOSPHAMIDE [Concomitant]
  3. RITUXIMAB [Suspect]
     Indication: LYMPHOMA
     Dates: start: 20120111
  4. DOXORUBICIN HCL [Concomitant]
  5. PREDNISOLONE [Concomitant]

REACTIONS (2)
  - LIVER DISORDER [None]
  - RENAL DISORDER [None]
